FAERS Safety Report 21395474 (Version 2)
Quarter: 2023Q1

REPORT INFORMATION
  Report Type: Spontaneous
  Country: DE (occurrence: DE)
  Receive Date: 20220930
  Receipt Date: 20230125
  Transmission Date: 20230418
  Serious: Yes (Hospitalization)
  Sender: FDA-Public Use
  Company Number: DE-ADRED-06096-02

PATIENT
  Age: 78 Year
  Sex: Male
  Weight: 88.4 kg

DRUGS (15)
  1. PACLITAXEL [Suspect]
     Active Substance: PACLITAXEL
     Indication: Product used for unknown indication
     Dosage: ACCORDING TO SCHEME
  2. GEMCITABINE [Suspect]
     Active Substance: GEMCITABINE
     Indication: Product used for unknown indication
     Dosage: ACCORDING TO SCHEME
  3. INSULIN LISPRO [Suspect]
     Active Substance: INSULIN LISPRO
     Indication: Product used for unknown indication
     Dosage: ACCORDING TO SCHEME, MEDICATION ERRORS
  4. INSULIN GLARGINE [Suspect]
     Active Substance: INSULIN GLARGINE
     Indication: Product used for unknown indication
     Dosage: 1 DOSAGE FORMS DAILY; 24 IU, 0-0-0-1, UNIT DOSE : 1 DF , FREQUENCY : OD, MEDICATION ERRORS
  5. PANTOPRAZOLE [Concomitant]
     Active Substance: PANTOPRAZOLE
     Indication: Product used for unknown indication
     Dosage: 1 DOSAGE FORMS DAILY; 40 MG, 1-0-0-0, UNIT DOSE : 1 DF , FREQUENCY : OD
  6. TINZAPARIN [Concomitant]
     Active Substance: TINZAPARIN
     Indication: Product used for unknown indication
     Dosage: 1 DOSAGE FORMS DAILY; 14000 IU, 1-0-0-0, UNIT DOSE : 1 DF , FREQUENCY : OD
  7. NALOXONE HYDROCHLORIDE\TILIDINE HYDROCHLORIDE [Concomitant]
     Active Substance: NALOXONE HYDROCHLORIDE\TILIDINE HYDROCHLORIDE
     Indication: Product used for unknown indication
     Dosage: 2 DOSAGE FORMS DAILY; 8|100 MG, 1-0-1-0, UNIT DOSE : 1 DF , FREQUENCY : BD
  8. CETIRIZINE [Concomitant]
     Active Substance: CETIRIZINE HYDROCHLORIDE
     Indication: Product used for unknown indication
     Dosage: 10 MG, IF NECESSARY
  9. CHOLECALCIFEROL [Concomitant]
     Active Substance: CHOLECALCIFEROL
     Indication: Product used for unknown indication
     Dosage: 20000 IU, WEEKLY
  10. METAMIZOLE [Concomitant]
     Active Substance: METAMIZOLE
     Indication: Product used for unknown indication
     Dosage: 4 DOSAGE FORMS DAILY; 1 G, 1-1-1-1, UNIT DOSE : 1 DF , FREQUENCY : 4 TIMES A DAY
  11. glycopyrronium bromide/indacaterol [Concomitant]
     Indication: Product used for unknown indication
     Dosage: 1 DOSAGE FORMS DAILY; 85|43 MCG, 1-0-0-0, UNIT DOSE : 1 DF , FREQUENCY : OD
  12. TORSEMIDE [Concomitant]
     Active Substance: TORSEMIDE
     Indication: Product used for unknown indication
     Dosage: 1 DOSAGE FORMS DAILY; 40 MG, 1-0-0-0, UNIT DOSE : 1 DF , FREQUENCY : OD
  13. ALLOPURINOL [Concomitant]
     Active Substance: ALLOPURINOL
     Indication: Product used for unknown indication
     Dosage: 1 DOSAGE FORMS DAILY; 300 MG, 1-0-0-0, UNIT DOSE : 1 DF , FREQUENCY : OD
  14. METOPROLOL [Concomitant]
     Active Substance: METOPROLOL
     Indication: Product used for unknown indication
     Dosage: 2 DOSAGE FORMS DAILY; 23.75 MG, 1-0-1-0, UNIT DOSE : 1 DF , FREQUENCY : BD
  15. Pancreatan [Concomitant]
     Indication: Product used for unknown indication
     Dosage: 3 DOSAGE FORMS DAILY; 25000 IU, 1-1-1-0, PANCREATAN 25000, UNIT DOSE : 1 DF , FREQUENCY : 3 TIMES A

REACTIONS (5)
  - Night sweats [Unknown]
  - General physical health deterioration [Unknown]
  - Fatigue [Unknown]
  - Medication error [Unknown]
  - Diarrhoea [Unknown]
